FAERS Safety Report 11869597 (Version 1)
Quarter: 2015Q4

REPORT INFORMATION
  Report Type: Spontaneous
  Country: US (occurrence: US)
  Receive Date: 20151228
  Receipt Date: 20151228
  Transmission Date: 20160305
  Serious: Yes (Other)
  Sender: FDA-Public Use
  Company Number: US-CIPLA LTD.-2015US09646

PATIENT

DRUGS (2)
  1. SERTRALINE [Suspect]
     Active Substance: SERTRALINE HYDROCHLORIDE
     Dosage: 150 MG, QD
     Route: 064
  2. RISPERIDONE. [Suspect]
     Active Substance: RISPERIDONE
     Indication: DEPRESSION
     Dosage: 0.25 MG, QD
     Route: 064

REACTIONS (6)
  - Tremor [Recovered/Resolved]
  - Foetal exposure during pregnancy [Unknown]
  - Muscle spasms [Recovered/Resolved]
  - Laryngomalacia [Recovered/Resolved]
  - Drug withdrawal syndrome [None]
  - Irritability [Recovered/Resolved]
